FAERS Safety Report 25644596 (Version 1)
Quarter: 2025Q3

REPORT INFORMATION
  Report Type: Spontaneous
  Country: US (occurrence: None)
  Receive Date: 20250804
  Receipt Date: 20250804
  Transmission Date: 20251020
  Serious: Yes (Hospitalization)
  Sender: FDA-CTU
  Company Number: None

PATIENT
  Sex: Male

DRUGS (7)
  1. TACROLIMUS [Suspect]
     Active Substance: TACROLIMUS
     Indication: Renal transplant
     Dosage: FREQUENCY : TWICE A DAY;?
     Route: 048
     Dates: start: 20240727
  2. LABETALOL TAB 100MG [Concomitant]
  3. LOPID TAB 600MG [Concomitant]
  4. MAGNESIUM TAB 250MG [Concomitant]
  5. MYCOPHENOLATE MOFETIL [Concomitant]
     Active Substance: MYCOPHENOLATE MOFETIL
  6. NORVASC [Concomitant]
     Active Substance: AMLODIPINE BESYLATE
  7. VALTREX TAB 1GM [Concomitant]

REACTIONS (1)
  - Surgery [None]
